FAERS Safety Report 8732187 (Version 3)
Quarter: 2013Q1

REPORT INFORMATION
  Report Type: Spontaneous
  Country: US (occurrence: None)
  Receive Date: 20120801
  Receipt Date: 20120924
  Transmission Date: 20140127
  Serious: Yes (Life-Threatening, Hospitalization, Other)
  Sender: FDA-Public Use
  Company Number: 1356067

PATIENT
  Age: 33 Year
  Sex: Male
  Weight: 93 kg

DRUGS (26)
  1. CEFEPIME [Suspect]
     Indication: INFECTION
     Dosage: Q8 HOURS
     Route: 042
     Dates: start: 20120329, end: 20120419
  2. IMIPENEM AND CILASTATIN [Suspect]
     Indication: INFECTION
     Dosage: Q8 HOURS
     Route: 042
     Dates: start: 20120507, end: 20120528
  3. UNSPECIFIED INGREDIENT [Suspect]
     Indication: ACUTE MYELOID LEUKAEMIA
     Dosage: UID/QD
     Route: 048
     Dates: start: 20120402, end: 20120408
  4. DAUNORUBICIN HYDROCHLORIDE [Suspect]
     Indication: ACUTE MYELOID LEUKAEMIA
     Dosage: UID/QD
     Route: 042
     Dates: start: 20120330, end: 20120401
  5. CYTARABINE [Suspect]
     Indication: ACUTE MYELOID LEUKAEMIA
     Dosage: UID/QD
     Route: 042
     Dates: start: 20120330, end: 20120405
  6. CASPOFUNGIN ACETATE [Suspect]
     Indication: INFECTION
     Dosage: TOTAL DOSE
     Route: 042
     Dates: start: 20120408, end: 20120408
  7. VANCOMYCIN [Suspect]
     Indication: PRODUCT USED FOR UNKNOWN INDICATION
     Route: 042
     Dates: start: 20120416, end: 20120502
  8. VORICONAZOLE [Suspect]
     Indication: PRODUCT USED FOR UNKNOWN INDICATION
     Dosage: Q12 HOURS
     Route: 042
     Dates: start: 20120508, end: 20120508
  9. PENICILLIN G [Suspect]
     Indication: INFECTION
     Dosage: Q24 HRS
     Route: 042
     Dates: start: 20120504, end: 20120509
  10. AMBISOME [Suspect]
     Indication: FUNGAL INFECTION
     Dosage: UID/QD
     Route: 042
     Dates: start: 20120506, end: 20120508
  11. AMBISOME [Suspect]
     Indication: INFECTION PROPHYLAXIS
     Dosage: UID/QD
     Route: 042
     Dates: start: 20120506, end: 20120508
  12. AZTREONAM [Suspect]
     Indication: BACTERIAL INFECTION
     Dosage: Q8 HOURS
     Route: 042
     Dates: start: 20120409, end: 20120410
  13. IBUPROFEN [Concomitant]
  14. PERCOCET [Concomitant]
  15. ZYLOPRIM [Concomitant]
  16. LORAZEPAM [Concomitant]
  17. ACETAMINOPHEN [Concomitant]
  18. HYDROXYZINE PAMOATE [Concomitant]
  19. ONDANSETRON [Concomitant]
  20. CELEXA [Concomitant]
  21. SEROQUEL [Concomitant]
  22. CALCIUM GLUCONATE [Concomitant]
  23. XANAX [Concomitant]
  24. ALLOPURINOL [Concomitant]
  25. NYSTATIN [Concomitant]
  26. CALCIUM CARBONATE [Concomitant]

REACTIONS (17)
  - Device related infection [None]
  - Lactobacillus infection [None]
  - Acute respiratory distress syndrome [None]
  - Renal failure acute [None]
  - Bacterial sepsis [None]
  - Febrile neutropenia [None]
  - Tachycardia [None]
  - Alopecia [None]
  - Scleral haemorrhage [None]
  - Blood pH increased [None]
  - Base excess decreased [None]
  - Haemodialysis [None]
  - Blood pH decreased [None]
  - Blood bicarbonate increased [None]
  - Treatment failure [None]
  - Bone marrow failure [None]
  - Acute respiratory failure [None]
